FAERS Safety Report 9339735 (Version 1)
Quarter: 2013Q2

REPORT INFORMATION
  Report Type: Spontaneous
  Country: US (occurrence: US)
  Receive Date: 20130610
  Receipt Date: 20130610
  Transmission Date: 20140414
  Serious: Yes (Other)
  Sender: FDA-Public Use
  Company Number: US-009507513-1306USA003547

PATIENT
  Sex: Female

DRUGS (2)
  1. NUVARING [Suspect]
     Indication: CONTRACEPTION
     Dosage: UNK
     Route: 067
     Dates: start: 200512, end: 200601
  2. NUVARING [Suspect]
     Dosage: UNK
     Route: 067
     Dates: start: 200912, end: 20100219

REACTIONS (4)
  - Caesarean section [Unknown]
  - Maternal exposure before pregnancy [Recovered/Resolved]
  - Pre-eclampsia [Unknown]
  - High risk pregnancy [Unknown]
